FAERS Safety Report 9785286 (Version 2)
Quarter: 2014Q2

REPORT INFORMATION
  Report Type: Spontaneous
  Country: US (occurrence: None)
  Receive Date: 20131224
  Receipt Date: 20140515
  Transmission Date: 20141212
  Serious: Yes (Other)
  Sender: FDA-Public Use
  Company Number: ADR-2013-02316

PATIENT
  Sex: Male

DRUGS (1)
  1. BACLOFEN [Suspect]
     Indication: MUSCLE SPASTICITY

REACTIONS (6)
  - Meningocele [None]
  - Muscle spasticity [None]
  - Therapeutic response decreased [None]
  - Cerebrospinal fluid leakage [None]
  - Catheter site extravasation [None]
  - Muscle spasticity [None]
